FAERS Safety Report 17165776 (Version 1)
Quarter: 2019Q4

REPORT INFORMATION
  Report Type: Spontaneous
  Country: BE (occurrence: BE)
  Receive Date: 20191217
  Receipt Date: 20191217
  Transmission Date: 20200122
  Serious: Yes (Death)
  Sender: FDA-Public Use
  Company Number: PHHY2018BE179028

PATIENT
  Age: 93 Year

DRUGS (2)
  1. MOXIFLOXACIN. [Suspect]
     Active Substance: MOXIFLOXACIN
     Indication: PRODUCT USED FOR UNKNOWN INDICATION
     Dosage: UNK
     Route: 065
  2. PIPERACILLIN AND TAZOBACTAM [Concomitant]
     Active Substance: PIPERACILLIN SODIUM\TAZOBACTAM SODIUM
     Indication: PNEUMONIA STAPHYLOCOCCAL
     Route: 065

REACTIONS (6)
  - Productive cough [Fatal]
  - Epistaxis [Fatal]
  - Dyspnoea [Fatal]
  - Pneumonia staphylococcal [Fatal]
  - Hypopnoea [Fatal]
  - Haemoptysis [Fatal]
